APPROVED DRUG PRODUCT: HYDRALAZINE HYDROCHLORIDE
Active Ingredient: HYDRALAZINE HYDROCHLORIDE
Strength: 50MG
Dosage Form/Route: TABLET;ORAL
Application: A088241 | Product #001
Applicant: WEST WARD PHARMACEUTICAL CORP
Approved: May 27, 1983 | RLD: No | RS: No | Type: DISCN